FAERS Safety Report 10237455 (Version 2)
Quarter: 2014Q2

REPORT INFORMATION
  Report Type: Spontaneous
  Country: IT (occurrence: IT)
  Receive Date: 20140615
  Receipt Date: 20140625
  Transmission Date: 20141212
  Serious: Yes (Hospitalization)
  Sender: FDA-Public Use
  Company Number: PHHY2014IT072903

PATIENT
  Age: 66 Year
  Sex: Male

DRUGS (7)
  1. EXELON [Suspect]
     Indication: DEMENTIA ALZHEIMER^S TYPE
     Dosage: 18 UG, DAILY
     Route: 048
     Dates: start: 20140402, end: 20140527
  2. METFORMIN [Concomitant]
     Dosage: 1000 MG, UNK
  3. PANTOPRAZOLE [Concomitant]
     Dosage: 20 MG, UNK
     Route: 048
  4. PAROXETINE [Concomitant]
     Dosage: 20 MG, DAILY
     Route: 048
  5. COMPETACT [Concomitant]
     Dosage: METF 850 MG / PIOG 15 MG
  6. AGGRENOX [Concomitant]
     Dosage: DIPY 200 MG / ACET 25 MG
  7. LANTUS [Concomitant]
     Dosage: 100 U/ML, UNK

REACTIONS (2)
  - Head injury [Recovered/Resolved with Sequelae]
  - Syncope [Recovered/Resolved with Sequelae]
